FAERS Safety Report 7654193-3 (Version None)
Quarter: 2011Q3

REPORT INFORMATION
  Report Type: 
  Country: None (occurrence: None)
  Receive Date: 20110803
  Receipt Date: 20110726
  Transmission Date: 20111222
  Serious: Yes (Hospitalization)
  Sender: FDA-Public Use
  Company Number: JP-ROCHE-785720

PATIENT
  Sex: Male
  Weight: 15 kg

DRUGS (13)
  1. CYCLOSPORINE [Concomitant]
     Route: 048
     Dates: start: 20090413, end: 20090904
  2. IBRUPROFEN [Concomitant]
     Route: 048
     Dates: end: 20090413
  3. ACTEMRA [Suspect]
     Indication: JUVENILE ARTHRITIS
     Route: 041
     Dates: start: 20090430
  4. METHOTREXATE [Concomitant]
     Route: 048
     Dates: start: 20090413, end: 20090706
  5. PREDNISOLONE [Concomitant]
     Route: 048
     Dates: start: 20091023
  6. PREDNISOLONE [Concomitant]
     Route: 048
     Dates: end: 20090409
  7. METHOTREXATE [Concomitant]
     Route: 048
     Dates: start: 20100421
  8. PREDNISOLONE [Concomitant]
     Route: 048
     Dates: start: 20090410, end: 20091022
  9. CYCLOSPORINE [Concomitant]
     Dosage: DOSE FORM: PERORAL AGENT
     Route: 048
     Dates: end: 20090812
  10. METHOTREXATE [Concomitant]
     Route: 048
     Dates: start: 20090904
  11. PREDNISOLONE [Concomitant]
     Route: 048
     Dates: start: 20110404
  12. DEXAMETHASONE [Concomitant]
     Dosage: LIMETHASON
     Route: 041
     Dates: start: 20090403, end: 20090413
  13. IBRUPROFEN [Concomitant]
     Dosage: GRANULATED POWDER
     Route: 048
     Dates: start: 20100521

REACTIONS (1)
  - PYREXIA [None]
